FAERS Safety Report 14617574 (Version 1)
Quarter: 2018Q1

REPORT INFORMATION
  Report Type: Spontaneous
  Country: FR (occurrence: FR)
  Receive Date: 20180309
  Receipt Date: 20180309
  Transmission Date: 20180509
  Serious: Yes (Hospitalization, Other)
  Sender: FDA-Public Use
  Company Number: FR-BRISTOL-MYERS SQUIBB COMPANY-BMS-2018-018556

PATIENT
  Age: 60 Year
  Sex: Female

DRUGS (5)
  1. COMBIVIR [Suspect]
     Active Substance: LAMIVUDINE\ZIDOVUDINE
     Indication: HIV INFECTION
     Dosage: 2 DF
     Route: 048
     Dates: start: 20081001
  2. IXPRIM [Suspect]
     Active Substance: ACETAMINOPHEN\TRAMADOL HYDROCHLORIDE
     Indication: GAIT DISTURBANCE
     Route: 048
  3. DEPAKINE                           /00228501/ [Suspect]
     Active Substance: VALPROIC ACID
     Indication: EPILEPSY
     Dosage: 2 TAB, UNK
     Route: 048
  4. REYATAZ [Suspect]
     Active Substance: ATAZANAVIR SULFATE
     Indication: HIV INFECTION
     Dosage: 300 MG, QD
     Route: 048
     Dates: start: 20070901
  5. NORVIR [Suspect]
     Active Substance: RITONAVIR
     Indication: HIV INFECTION
     Dosage: 100 MG, QD
     Route: 048
     Dates: start: 20070901

REACTIONS (2)
  - Anaemia [Not Recovered/Not Resolved]
  - Aplasia pure red cell [Not Recovered/Not Resolved]

NARRATIVE: CASE EVENT DATE: 20171212
